FAERS Safety Report 9303392 (Version 1)
Quarter: 2013Q2

REPORT INFORMATION
  Report Type: Spontaneous
  Country: CA (occurrence: CA)
  Receive Date: 20130522
  Receipt Date: 20130522
  Transmission Date: 20140414
  Serious: Yes (Other)
  Sender: FDA-Public Use
  Company Number: CA-BAYER-2013-060344

PATIENT
  Sex: 0

DRUGS (1)
  1. BETASERON [Suspect]

REACTIONS (2)
  - Multiple sclerosis relapse [None]
  - Therapeutic product ineffective [None]
